FAERS Safety Report 6183794-7 (Version None)
Quarter: 2009Q2

REPORT INFORMATION
  Report Type: 
  Country: None (occurrence: None)
  Receive Date: 20090508
  Receipt Date: 20090428
  Transmission Date: 20091009
  Serious: Yes (Hospitalization, Other)
  Sender: FDA-Public Use
  Company Number: US-AMGEN-QUU337978

PATIENT
  Sex: Male
  Weight: 72.6 kg

DRUGS (7)
  1. EPOGEN [Suspect]
     Indication: DIALYSIS
     Route: 058
     Dates: start: 20080628
  2. ARANESP [Suspect]
     Indication: DIALYSIS
     Route: 058
     Dates: start: 20080701
  3. RESTORIL [Concomitant]
  4. FERROUS SULFATE TAB [Concomitant]
  5. MULTI-VITAMINS [Concomitant]
  6. ZEMPLAR [Concomitant]
  7. PHOSLO [Concomitant]

REACTIONS (4)
  - ATRIAL FIBRILLATION [None]
  - HYPOTENSION [None]
  - MALAISE [None]
  - THERAPEUTIC RESPONSE DECREASED [None]
